FAERS Safety Report 9919353 (Version 2)
Quarter: 2014Q1

REPORT INFORMATION
  Report Type: Spontaneous
  Country: US (occurrence: US)
  Receive Date: 20140224
  Receipt Date: 20140325
  Transmission Date: 20141002
  Serious: Yes (Congenital Anomaly)
  Sender: FDA-Public Use
  Company Number: US-PFIZER INC-2014049368

PATIENT
  Sex: Female

DRUGS (15)
  1. ZOLOFT [Suspect]
     Dosage: UNK
     Route: 064
     Dates: start: 20090805
  2. SERTRALINE HCL [Suspect]
     Dosage: UNK
     Route: 064
     Dates: start: 20090805
  3. CIPRO [Concomitant]
     Dosage: UNK
     Route: 064
  4. TOPAMAX [Concomitant]
     Dosage: UNK
     Route: 064
  5. YASMIN [Concomitant]
     Dosage: UNK
     Route: 064
  6. ALDARA [Concomitant]
     Dosage: UNK
     Route: 064
  7. TAMIFLU [Concomitant]
     Dosage: UNK
     Route: 064
  8. TYLENOL [Concomitant]
     Dosage: UNK
     Route: 064
  9. CEFUROXIME [Concomitant]
     Dosage: UNK
     Route: 064
  10. LORTAB [Concomitant]
     Dosage: UNK
     Route: 064
  11. FLEXERIL [Concomitant]
     Dosage: UNK
     Route: 064
  12. KEPPRA [Concomitant]
     Dosage: UNK
     Route: 064
  13. LEVETIRACETAM [Concomitant]
     Dosage: UNK
     Route: 064
  14. METRONIDAZOLE [Concomitant]
     Dosage: UNK
     Route: 064
  15. CEPHALEXIN [Concomitant]
     Dosage: UNK
     Route: 064

REACTIONS (3)
  - Maternal exposure during pregnancy [Unknown]
  - Spina bifida occulta [Unknown]
  - Polydactyly [Unknown]
